FAERS Safety Report 7801842-2 (Version None)
Quarter: 2011Q4

REPORT INFORMATION
  Report Type: 
  Country: None (occurrence: None)
  Receive Date: 20111007
  Receipt Date: 20110928
  Transmission Date: 20120403
  Serious: Yes (Other)
  Sender: FDA-Public Use
  Company Number: FR-PFIZER INC-2011191894

PATIENT
  Age: 85 Year
  Sex: Female

DRUGS (3)
  1. RAMIPRIL [Suspect]
     Dosage: UNK
  2. FUROSEMIDE [Suspect]
     Dosage: UNK
  3. NITRENDIPINE [Suspect]
     Dosage: UNK

REACTIONS (1)
  - HYPONATRAEMIA [None]
